FAERS Safety Report 16837628 (Version 1)
Quarter: 2019Q3

REPORT INFORMATION
  Report Type: Spontaneous
  Country: US (occurrence: US)
  Receive Date: 20190923
  Receipt Date: 20190923
  Transmission Date: 20191005
  Serious: No
  Sender: FDA-Public Use
  Company Number: US-009507513-1909USA001491

PATIENT
  Sex: Female
  Weight: 53.52 kg

DRUGS (11)
  1. OMEPRAZOLE. [Concomitant]
     Active Substance: OMEPRAZOLE
  2. AMLODIPINE [Concomitant]
     Active Substance: AMLODIPINE BESYLATE
  3. LORAZEPAM. [Concomitant]
     Active Substance: LORAZEPAM
  4. LIDOCAINE (+) PRILOCAINE [Concomitant]
  5. VIRTUSSIN AC [Concomitant]
     Active Substance: CODEINE PHOSPHATE\GUAIFENESIN
  6. LONSURF [Concomitant]
     Active Substance: TIPIRACIL HYDROCHLORIDE\TRIFLURIDINE
  7. CARAFATE [Concomitant]
     Active Substance: SUCRALFATE
  8. INTRON A [Suspect]
     Active Substance: INTERFERON ALFA-2B
     Indication: COLORECTAL CANCER METASTATIC
     Dosage: 300,000 IU (0.05 ML), THREE TIMES PER WEEK
     Route: 023
  9. LEUKINE [Concomitant]
     Active Substance: SARGRAMOSTIM
  10. METFORMIN [Concomitant]
     Active Substance: METFORMIN HYDROCHLORIDE
  11. CYANOCOBALAMIN. [Concomitant]
     Active Substance: CYANOCOBALAMIN

REACTIONS (3)
  - Nausea [Unknown]
  - Diarrhoea [Unknown]
  - Vomiting [Unknown]
